FAERS Safety Report 22108288 (Version 1)
Quarter: 2023Q1

REPORT INFORMATION
  Report Type: Spontaneous
  Country: NL (occurrence: NL)
  Receive Date: 20230317
  Receipt Date: 20230317
  Transmission Date: 20230417
  Serious: Yes (Hospitalization)
  Sender: FDA-Public Use
  Company Number: NL-MYLANLABS-2023M1026800

PATIENT
  Age: 70 Year
  Sex: Female

DRUGS (6)
  1. METFORMIN [Suspect]
     Active Substance: METFORMIN HYDROCHLORIDE
     Indication: Type 2 diabetes mellitus
     Dosage: UNK
     Route: 065
  2. ENALAPRIL [Suspect]
     Active Substance: ENALAPRIL
     Indication: Hypertension
     Dosage: UNK
     Route: 065
  3. NAPROXEN [Suspect]
     Active Substance: NAPROXEN
     Indication: Cancer pain
     Dosage: UNK
     Route: 065
  4. ALECTINIB [Concomitant]
     Active Substance: ALECTINIB
     Indication: Non-small cell lung cancer
     Dosage: 600 MILLIGRAM, BID
     Route: 065
  5. ALECTINIB [Concomitant]
     Active Substance: ALECTINIB
     Dosage: 300 MILLIGRAM, BID
     Route: 065
  6. ALECTINIB [Concomitant]
     Active Substance: ALECTINIB
     Dosage: 450 MILLIGRAM, BID
     Route: 065

REACTIONS (2)
  - Glomerular vascular disorder [Recovered/Resolved]
  - Vasoconstriction [Recovered/Resolved]
